FAERS Safety Report 7369027-4 (Version None)
Quarter: 2011Q1

REPORT INFORMATION
  Report Type: 
  Country: None (occurrence: None)
  Receive Date: 20110323
  Receipt Date: 20110317
  Transmission Date: 20110831
  Serious: Yes (Hospitalization)
  Sender: FDA-Public Use
  Company Number: US-ABBOTT-11P-163-0712753-00

PATIENT
  Age: 47 Year
  Sex: Female

DRUGS (7)
  1. METHADONE [Concomitant]
     Indication: PAIN
  2. METHOTREXATE [Concomitant]
     Indication: RHEUMATOID ARTHRITIS
     Dosage: 6 TABLETS ONCE A WEEK
  3. HUMIRA [Suspect]
     Indication: RHEUMATOID ARTHRITIS
     Dates: start: 20101001
  4. FOLIC ACID [Concomitant]
     Indication: VITAMIN SUPPLEMENTATION
  5. VYTORIN [Concomitant]
     Indication: BLOOD CHOLESTEROL INCREASED
     Dosage: 10/40 MG ONCE A DAY
  6. HYDROXYCHLOROQUINE SULFATE [Concomitant]
     Indication: RHEUMATOID ARTHRITIS
  7. PENNSAID [Concomitant]
     Indication: RHEUMATOID ARTHRITIS

REACTIONS (2)
  - LOSS OF CONSCIOUSNESS [None]
  - HYPOAESTHESIA [None]
